FAERS Safety Report 7665049-4 (Version None)
Quarter: 2011Q3

REPORT INFORMATION
  Report Type: 
  Country: None (occurrence: None)
  Receive Date: 20110806
  Receipt Date: 20110103
  Transmission Date: 20111222
  Serious: No
  Sender: FDA-Public Use
  Company Number: US-ABBOTT-11P-163-0694920-00

PATIENT
  Sex: Male
  Weight: 72.64 kg

DRUGS (8)
  1. UNKNOWN STATIN MEDICATION [Suspect]
     Indication: PRODUCT USED FOR UNKNOWN INDICATION
     Dates: end: 20080101
  2. D'RIBOSE [Concomitant]
     Indication: PRODUCT USED FOR UNKNOWN INDICATION
  3. LOVAZA [Concomitant]
     Indication: PRODUCT USED FOR UNKNOWN INDICATION
  4. VIT E [Concomitant]
     Indication: PRODUCT USED FOR UNKNOWN INDICATION
  5. NIASPAN [Suspect]
     Indication: HIGH DENSITY LIPOPROTEIN DECREASED
  6. FISH OIL [Concomitant]
     Indication: PRODUCT USED FOR UNKNOWN INDICATION
  7. NIASPAN [Suspect]
     Indication: LOW DENSITY LIPOPROTEIN INCREASED
     Dosage: IN THE MORNING
     Dates: start: 20080101
  8. ARGENINE [Concomitant]
     Indication: PRODUCT USED FOR UNKNOWN INDICATION

REACTIONS (6)
  - HOT FLUSH [None]
  - ERYTHEMA [None]
  - PRURITUS [None]
  - FEELING HOT [None]
  - MYALGIA [None]
  - BURNING SENSATION [None]
